FAERS Safety Report 5165393-9 (Version None)
Quarter: 2006Q4

REPORT INFORMATION
  Report Type: 
  Country: None (occurrence: None)
  Receive Date: 20061206
  Receipt Date: 20061129
  Transmission Date: 20070319
  Serious: Yes (Other)
  Sender: FDA-Public Use
  Company Number: JP-AVENTIS-200613721JP

PATIENT

DRUGS (1)
  1. AMARYL [Suspect]
     Route: 048
     Dates: start: 20000101, end: 20000101

REACTIONS (2)
  - ATRIOVENTRICULAR BLOCK [None]
  - SINUS ARREST [None]
